FAERS Safety Report 20703749 (Version 1)
Quarter: 2022Q2

REPORT INFORMATION
  Report Type: Spontaneous
  Country: GB (occurrence: GB)
  Receive Date: 20220413
  Receipt Date: 20220413
  Transmission Date: 20220721
  Serious: Yes (Death, Other)
  Sender: FDA-Public Use
  Company Number: GB-MHRA-MED-202203311030340390-WLKBF

PATIENT
  Age: 49 Year
  Sex: Female
  Weight: 30 kg

DRUGS (2)
  1. ACETAMINOPHEN [Suspect]
     Active Substance: ACETAMINOPHEN
     Indication: Pyrexia
     Dosage: 1G FOUR TIMES PER DAY; ;
     Route: 065
     Dates: end: 20211025
  2. CARBAMAZEPINE [Suspect]
     Active Substance: CARBAMAZEPINE
     Indication: Epilepsy
     Dosage: 200MG TWICE EACH DAY; ;
     Route: 065
     Dates: end: 20211026

REACTIONS (4)
  - Acute hepatic failure [Fatal]
  - Hypoglycaemia [Unknown]
  - Hypotension [Unknown]
  - Medication error [Unknown]

NARRATIVE: CASE EVENT DATE: 20211024
